FAERS Safety Report 9866974 (Version 1)
Quarter: 2014Q1

REPORT INFORMATION
  Report Type: Spontaneous
  Country: US (occurrence: None)
  Receive Date: 20140131
  Receipt Date: 20140131
  Transmission Date: 20141002
  Serious: Yes (Other)
  Sender: FDA-Public Use
  Company Number: ADR-2014-00141

PATIENT
  Age: 58 Year
  Sex: Female

DRUGS (12)
  1. LIORESAL [Suspect]
     Indication: MUSCLE SPASTICITY
  2. FINGOLIMOD [Concomitant]
  3. HYOSCYANMINE SUBLINGUAL [Concomitant]
  4. RISEDRONATE [Concomitant]
  5. ALPRAZOLAM [Concomitant]
  6. DITROPAN XL [Concomitant]
  7. CIPRO [Concomitant]
  8. CRESTOR [Concomitant]
  9. ASPIRIN [Concomitant]
  10. ASPIRIN [Concomitant]
  11. LOPERAMIDE [Concomitant]
  12. VITAMIN D3 [Concomitant]

REACTIONS (6)
  - Muscle spasms [None]
  - Inflammatory bowel disease [None]
  - Constipation [None]
  - Weight decreased [None]
  - Fall [None]
  - Tibia fracture [None]
